FAERS Safety Report 12939514 (Version 1)
Quarter: 2016Q4

REPORT INFORMATION
  Report Type: Spontaneous
  Country: ES (occurrence: ES)
  Receive Date: 20161115
  Receipt Date: 20161115
  Transmission Date: 20170207
  Serious: Yes (Other)
  Sender: FDA-Public Use
  Company Number: ES-ROCHE-1853263

PATIENT
  Age: 72 Year
  Sex: Male

DRUGS (1)
  1. RIVOTRIL [Suspect]
     Active Substance: CLONAZEPAM
     Indication: SLEEP DISORDER
     Route: 065
     Dates: start: 201604, end: 20161007

REACTIONS (7)
  - Somnolence [Unknown]
  - Confusional state [Unknown]
  - Urinary incontinence [Unknown]
  - Restlessness [Unknown]
  - Diplopia [Unknown]
  - Fatigue [Unknown]
  - Disorientation [Recovered/Resolved]

NARRATIVE: CASE EVENT DATE: 201604
